FAERS Safety Report 5450348-7 (Version None)
Quarter: 2007Q3

REPORT INFORMATION
  Report Type: 
  Country: None (occurrence: None)
  Receive Date: 20070912
  Receipt Date: 20070910
  Transmission Date: 20080115
  Serious: Yes (Hospitalization, Other)
  Sender: FDA-Public Use
  Company Number: US-BRISTOL-MYERS SQUIBB COMPANY-13900790

PATIENT
  Age: 72 Year
  Sex: Male
  Weight: 90 kg

DRUGS (3)
  1. CETUXIMAB [Suspect]
     Indication: NEOPLASM MALIGNANT
     Dosage: RESTARTED ON 04-SEP-2007.
     Route: 042
     Dates: start: 20070821, end: 20070821
  2. CISPLATIN [Suspect]
     Indication: NEOPLASM MALIGNANT
     Dosage: DAY 1 17-JUL-2007 AND DAY 22 14-AUG-2007.
     Route: 042
     Dates: start: 20070814, end: 20070814
  3. RADIATION THERAPY [Suspect]
     Indication: NEOPLASM MALIGNANT
     Dosage: 6000 CGY.
     Dates: start: 20070509, end: 20070509

REACTIONS (10)
  - DEHYDRATION [None]
  - DYSPHAGIA [None]
  - INFECTION [None]
  - LEUKOPENIA [None]
  - MUCOSAL INFLAMMATION [None]
  - NAUSEA [None]
  - NEUTROPHIL COUNT DECREASED [None]
  - PLATELET COUNT DECREASED [None]
  - SALIVARY GLAND DISORDER [None]
  - VOMITING [None]
